FAERS Safety Report 8323069-0 (Version None)
Quarter: 2012Q2

REPORT INFORMATION
  Report Type: 
  Country: None (occurrence: None)
  Receive Date: 20120430
  Receipt Date: 20120423
  Transmission Date: 20120825
  Serious: Yes (Other)
  Sender: FDA-Public Use
  Company Number: US-US-EMD SERONO, INC.-7128335

PATIENT
  Sex: Female

DRUGS (3)
  1. REBIF [Suspect]
     Indication: PRODUCT USED FOR UNKNOWN INDICATION
     Route: 058
     Dates: start: 20081114
  2. IBUPROFEN [Concomitant]
     Indication: PREMEDICATION
  3. INSULIN [Concomitant]
     Indication: DIABETES MELLITUS

REACTIONS (7)
  - DYSPNOEA [None]
  - BLOOD GLUCOSE INCREASED [None]
  - CHEST DISCOMFORT [None]
  - INJECTION SITE PAIN [None]
  - INTESTINAL STENOSIS [None]
  - BREAST CALCIFICATIONS [None]
  - HYPOAESTHESIA [None]
